FAERS Safety Report 17845948 (Version 1)
Quarter: 2020Q2

REPORT INFORMATION
  Report Type: Spontaneous
  Country: US (occurrence: US)
  Receive Date: 20200601
  Receipt Date: 20200601
  Transmission Date: 20200714
  Serious: Yes (Other)
  Sender: FDA-Public Use
  Company Number: None

PATIENT
  Age: 73 Year
  Sex: Male
  Weight: 117.03 kg

DRUGS (1)
  1. ERYTHROMYCIN (ERYTHROMYCIN BASE 250MG TAB) [Suspect]
     Active Substance: ERYTHROMYCIN
     Route: 048
     Dates: start: 20200226, end: 20200317

REACTIONS (2)
  - Liver function test increased [None]
  - Liver disorder [None]

NARRATIVE: CASE EVENT DATE: 20200318
